FAERS Safety Report 7272468-7 (Version None)
Quarter: 2011Q1

REPORT INFORMATION
  Report Type: 
  Country: None (occurrence: None)
  Receive Date: 20110126
  Receipt Date: 20110111
  Transmission Date: 20110831
  Serious: Yes (Other)
  Sender: FDA-Public Use
  Company Number: 08-AUR-05828

PATIENT
  Age: 71 Year
  Sex: Male

DRUGS (6)
  1. SIMVASTATIN [Suspect]
     Indication: HYPERCHOLESTEROLAEMIA
     Dosage: 10MG - DAILY - ORAL
     Route: 048
     Dates: start: 20031212, end: 20060322
  2. ASPIRIN [Concomitant]
  3. APOREX (DEXTROPROPOXYPHENE PARACETAMOL) ^4DF^ [Concomitant]
  4. ACETAMINOPHEN ^LDF'^ [Concomitant]
  5. DOTHIEPIN HYDROCHLORIDE [Concomitant]
  6. SIMVASTATIN [Suspect]
     Indication: HYPERCHOLESTEROLAEMIA
     Dosage: 10MG - DAILY - ORAL
     Route: 048
     Dates: start: 20020210, end: 20030121

REACTIONS (11)
  - TRANSIENT GLOBAL AMNESIA [None]
  - ERECTILE DYSFUNCTION [None]
  - PARTNER STRESS [None]
  - OVERDOSE [None]
  - ALOPECIA [None]
  - ECONOMIC PROBLEM [None]
  - AMNESIA [None]
  - IMPAIRED WORK ABILITY [None]
  - SENILE DEMENTIA [None]
  - CEREBROVASCULAR DISORDER [None]
  - SUICIDE ATTEMPT [None]
